FAERS Safety Report 10276734 (Version 1)
Quarter: 2014Q3

REPORT INFORMATION
  Report Type: Spontaneous
  Country: JP (occurrence: None)
  Receive Date: 20140701
  Receipt Date: 20140701
  Transmission Date: 20150326
  Serious: Yes (Hospitalization)
  Sender: FDA-Public Use
  Company Number: 2014JUB00019

PATIENT
  Age: 21 Year
  Sex: Male

DRUGS (2)
  1. METHYLPREDNISOLONE (METHYLPREDNISOLONE) UNKNOWN [Suspect]
     Active Substance: METHYLPREDNISOLONE
     Indication: OPTIC NEURITIS
  2. PREDNISOLONE (PREDNISOLONE) UNKNOWN [Suspect]
     Active Substance: PREDNISOLONE
     Indication: OPTIC NEURITIS
     Dosage: 1X/DAY
     Route: 048

REACTIONS (12)
  - Hepatic necrosis [None]
  - Tachypnoea [None]
  - Liver transplant [None]
  - Hepatitis C [None]
  - Hepatic encephalopathy [None]
  - Malaise [None]
  - Condition aggravated [None]
  - Pyrexia [None]
  - Hepatic atrophy [None]
  - Hepatitis fulminant [None]
  - Oedema peripheral [None]
  - Asterixis [None]
